FAERS Safety Report 23210473 (Version 10)
Quarter: 2025Q2

REPORT INFORMATION
  Report Type: Report from Study
  Country: CA (occurrence: CA)
  Receive Date: 20231121
  Receipt Date: 20250630
  Transmission Date: 20250716
  Serious: Yes (Other)
  Sender: AMGEN
  Company Number: CA-HORIZON THERAPEUTICS-HZN-2023-009554

PATIENT
  Age: 7 Year
  Sex: Male
  Weight: 20.55 kg

DRUGS (15)
  1. PROCYSBI [Suspect]
     Active Substance: CYSTEAMINE BITARTRATE
     Indication: Cystinosis
     Dosage: 750 MG, QD (25 MG AND 75 MG DELAYED-RELEASE  CAPSULES)
     Route: 048
     Dates: start: 20231105
  2. PROCYSBI [Suspect]
     Active Substance: CYSTEAMINE BITARTRATE
     Dosage: 825 MG, QD (25 MG AND 75 MG) (825 MG NIGHTLY)
     Route: 048
     Dates: start: 2024
  3. PROCYSBI [Suspect]
     Active Substance: CYSTEAMINE BITARTRATE
     Dosage: 875 MILLIGRAM, QD (NIGHTLY)
     Route: 048
  4. CYSTAGON [Concomitant]
     Active Substance: CYSTEAMINE BITARTRATE
     Dosage: 1600 MILLIGRAM, QD (1600 MG, DAILY)
     Route: 065
  5. CYSTAGON [Concomitant]
     Active Substance: CYSTEAMINE BITARTRATE
     Dosage: 400 MG, BID (400MG AT 8AM AND 400MG AT 2PM
     Route: 065
     Dates: start: 20231112, end: 20231118
  6. CYSTAGON [Concomitant]
     Active Substance: CYSTEAMINE BITARTRATE
     Route: 065
  7. CARNITOR [Concomitant]
     Active Substance: LEVOCARNITINE
  8. SODIUM PHOSPHATE [Concomitant]
     Active Substance: SODIUM PHOSPHATE
  9. POTASSIUM CITRATE [Concomitant]
     Active Substance: POTASSIUM CITRATE
  10. VITAMIN D [Concomitant]
     Active Substance: VITAMIN D NOS
  11. IRON [Concomitant]
     Active Substance: IRON
  12. CALCIUM [Concomitant]
     Active Substance: CALCIUM
  13. SODIUM BICARBONATE [Concomitant]
     Active Substance: SODIUM BICARBONATE
  14. SAIZEN [Concomitant]
     Active Substance: SOMATROPIN
  15. Cysta drops [Concomitant]

REACTIONS (4)
  - Lower respiratory tract infection [Recovered/Resolved]
  - Intentional product misuse [Unknown]
  - Off label use [Unknown]
  - Nausea [Recovered/Resolved]

NARRATIVE: CASE EVENT DATE: 20231105
